FAERS Safety Report 7640888-4 (Version None)
Quarter: 2011Q3

REPORT INFORMATION
  Report Type: 
  Country: None (occurrence: None)
  Receive Date: 20110728
  Receipt Date: 20110728
  Transmission Date: 20111222
  Serious: No
  Sender: FDA-Public Use
  Company Number: None

PATIENT
  Age: 40 Year
  Sex: Female
  Weight: 99.79 kg

DRUGS (3)
  1. OMEPRAZOLE [Suspect]
     Indication: GASTROOESOPHAGEAL REFLUX DISEASE
     Dosage: 20MG
     Route: 048
     Dates: start: 20080405, end: 20110725
  2. NUVARING [Concomitant]
  3. PRISTIQ [Concomitant]
     Route: 048

REACTIONS (3)
  - FOOT FRACTURE [None]
  - FIBULA FRACTURE [None]
  - STRESS FRACTURE [None]
